FAERS Safety Report 25995045 (Version 2)
Quarter: 2025Q4

REPORT INFORMATION
  Report Type: Spontaneous
  Country: JP (occurrence: JP)
  Receive Date: 20251104
  Receipt Date: 20251221
  Transmission Date: 20260118
  Serious: Yes (Hospitalization, Other)
  Sender: UNITED THERAPEUTICS
  Company Number: JP-UNITED THERAPEUTICS-UNT-2025-009086

PATIENT
  Age: 58 Year
  Sex: Female

DRUGS (4)
  1. TREPROSTINIL [Suspect]
     Active Substance: TREPROSTINIL
     Indication: Pulmonary hypertension
     Dosage: 18 ?G, QID
     Dates: start: 20250308, end: 202503
  2. TREPROSTINIL [Suspect]
     Active Substance: TREPROSTINIL
     Indication: Interstitial lung disease
     Dosage: 36 ?G, QID
     Dates: start: 202503, end: 2025
  3. TREPROSTINIL [Suspect]
     Active Substance: TREPROSTINIL
     Dosage: UNK, QID
     Dates: start: 2025, end: 2025
  4. TREPROSTINIL [Suspect]
     Active Substance: TREPROSTINIL
     Dosage: 72 ?G, QID
     Dates: start: 2025, end: 2025

REACTIONS (7)
  - Pulmonary hypertension [Unknown]
  - Pneumonia [Recovering/Resolving]
  - Rhinorrhoea [Recovering/Resolving]
  - Cough [Recovering/Resolving]
  - Dyspnoea exertional [Recovering/Resolving]
  - Abdominal distension [Recovering/Resolving]
  - Large intestine polyp [Unknown]

NARRATIVE: CASE EVENT DATE: 20250101
